FAERS Safety Report 10651725 (Version 1)
Quarter: 2014Q4

REPORT INFORMATION
  Report Type: Spontaneous
  Country: IT (occurrence: IT)
  Receive Date: 20141215
  Receipt Date: 20141215
  Transmission Date: 20150529
  Serious: Yes (Hospitalization)
  Sender: FDA-Public Use
  Company Number: IT-TEVA-527861ISR

PATIENT
  Age: 26 Year
  Sex: Female

DRUGS (3)
  1. ZOLPIDEM [Suspect]
     Active Substance: ZOLPIDEM\ZOLPIDEM TARTRATE
     Indication: INTENTIONAL SELF-INJURY
     Dosage: 5 DF TOTAL
     Route: 048
     Dates: start: 20141202, end: 20141202
  2. EN - 1 MG/ML GOCCE ORALI, SOLUZIONE - ABBOTT S.R.L. [Suspect]
     Active Substance: DELORAZEPAM
     Indication: INTENTIONAL SELF-INJURY
     Dosage: 60 GTT TOTAL
     Route: 048
     Dates: start: 20141202, end: 20141202
  3. FLUVOXAMINE MALEATE. [Suspect]
     Active Substance: FLUVOXAMINE MALEATE
     Indication: INTENTIONAL SELF-INJURY
     Dosage: 4 DF TOTAL
     Route: 048
     Dates: start: 20141202, end: 20141202

REACTIONS (4)
  - Anxiety [Recovered/Resolved]
  - Tremor [Recovered/Resolved]
  - Gaze palsy [Recovered/Resolved]
  - Drug abuse [Recovered/Resolved]

NARRATIVE: CASE EVENT DATE: 20141202
